FAERS Safety Report 7732914-9 (Version None)
Quarter: 2011Q3

REPORT INFORMATION
  Report Type: 
  Country: None (occurrence: None)
  Receive Date: 20110907
  Receipt Date: 20110829
  Transmission Date: 20111222
  Serious: Yes (Hospitalization)
  Sender: FDA-Public Use
  Company Number: PHHO2011FR10902

PATIENT
  Sex: Male
  Weight: 29.6 kg

DRUGS (4)
  1. ASPARAGINASE [Concomitant]
     Indication: ACUTE LYMPHOCYTIC LEUKAEMIA
     Dosage: 2400 MG/H, AT DAY 5
     Dates: start: 20110611
  2. AZACITIDINE [Concomitant]
     Indication: ACUTE LYMPHOCYTIC LEUKAEMIA
     Dosage: 1920 MG, BID AT DAY 1 AND 2
     Dates: start: 20110607
  3. GLEEVEC [Suspect]
     Indication: ACUTE LYMPHOCYTIC LEUKAEMIA
     Dosage: UNK
     Route: 048
     Dates: start: 20110112
  4. ETOPOSIDE [Concomitant]
     Indication: ACUTE LYMPHOCYTIC LEUKAEMIA
     Dosage: 96 MG, BID BETWEEN DAY 3 AND DAY 5
     Dates: start: 20110609

REACTIONS (1)
  - LUNG DISORDER [None]
